FAERS Safety Report 6325477-6 (Version None)
Quarter: 2009Q3

REPORT INFORMATION
  Report Type: 
  Country: None (occurrence: None)
  Receive Date: 20090824
  Receipt Date: 20090707
  Transmission Date: 20100115
  Serious: No
  Sender: FDA-Public Use
  Company Number: US-ABBOTT-09P-163-0584123-00

PATIENT
  Sex: Male

DRUGS (7)
  1. NIASPAN [Suspect]
     Indication: HIGH DENSITY LIPOPROTEIN DECREASED
  2. LIPITOR [Concomitant]
     Indication: DRUG USE FOR UNKNOWN INDICATION
  3. LOVASA [Concomitant]
     Indication: DRUG USE FOR UNKNOWN INDICATION
  4. CLARINEX [Concomitant]
     Indication: DRUG USE FOR UNKNOWN INDICATION
  5. EFFEXOR [Concomitant]
     Indication: DRUG USE FOR UNKNOWN INDICATION
  6. WELLBUTRIN [Concomitant]
     Indication: DRUG USE FOR UNKNOWN INDICATION
  7. METOPROLOL [Concomitant]
     Indication: DRUG USE FOR UNKNOWN INDICATION

REACTIONS (1)
  - ERYTHEMA [None]
